FAERS Safety Report 8419201-0 (Version None)
Quarter: 2012Q2

REPORT INFORMATION
  Report Type: 
  Country: None (occurrence: None)
  Receive Date: 20120607
  Receipt Date: 20120528
  Transmission Date: 20120825
  Serious: No
  Sender: FDA-Public Use
  Company Number: CA-JNJFOC-20120600459

PATIENT
  Sex: Female
  Weight: 67 kg

DRUGS (3)
  1. SYNTHROID [Concomitant]
     Dosage: 0.05 (DOSE UNSPECIFIED)
     Route: 065
  2. VITAMIN D [Concomitant]
     Dosage: 1000 (DOSE UNSPECIFIED)
     Route: 065
  3. REMICADE [Suspect]
     Indication: CROHN'S DISEASE
     Dosage: 300 MG, 100 MG/VIAL
     Route: 042
     Dates: start: 20110828

REACTIONS (2)
  - HERPES SIMPLEX [None]
  - ORAL HERPES [None]
